FAERS Safety Report 6386137-9 (Version None)
Quarter: 2009Q4

REPORT INFORMATION
  Report Type: 
  Country: None (occurrence: None)
  Receive Date: 20091002
  Receipt Date: 20081201
  Transmission Date: 20100525
  Serious: No
  Sender: FDA-Public Use
  Company Number: US-ASTRAZENECA-2008UW26709

PATIENT
  Sex: Female

DRUGS (3)
  1. ARIMIDEX [Suspect]
     Indication: BREAST CANCER
     Dosage: 1 MG
     Route: 048
     Dates: start: 20050101
  2. LISINOPRIL [Concomitant]
  3. GLUCOSAMINE CONDROITIN [Concomitant]

REACTIONS (3)
  - ARTHRITIS [None]
  - CYST [None]
  - HOT FLUSH [None]
